FAERS Safety Report 6166259-8 (Version None)
Quarter: 2009Q2

REPORT INFORMATION
  Report Type: 
  Country: None (occurrence: None)
  Receive Date: 20090424
  Receipt Date: 20090422
  Transmission Date: 20091009
  Serious: Yes (Hospitalization)
  Sender: FDA-Public Use
  Company Number: UA-BRISTOL-MYERS SQUIBB COMPANY-14557839

PATIENT
  Age: 57 Year
  Sex: Male

DRUGS (5)
  1. CARBOPLATIN [Suspect]
     Indication: NON-SMALL CELL LUNG CANCER
     Dosage: FIRST DOSE RECEIVED ON 02DEC08,  DISCONTINUED ON 1APR09
     Route: 042
     Dates: start: 20090224, end: 20090224
  2. TAXOL [Suspect]
     Indication: NON-SMALL CELL LUNG CANCER
     Dosage: FIRST DOSE RECEIVED ON 02DEC08, DISCONTINUED ON 1APR09
     Route: 042
     Dates: start: 20090224, end: 20090224
  3. DEXAMETHASONE 4MG TAB [Concomitant]
     Indication: PROPHYLAXIS
     Route: 042
     Dates: start: 20081202
  4. DIPHENHYDRAMINE HCL [Concomitant]
     Indication: PROPHYLAXIS
     Route: 042
     Dates: start: 20081202
  5. RANITIDINE [Concomitant]
     Indication: PROPHYLAXIS
     Route: 042
     Dates: start: 20081202

REACTIONS (1)
  - MYOCARDIAL ISCHAEMIA [None]
